FAERS Safety Report 23361490 (Version 11)
Quarter: 2025Q3

REPORT INFORMATION
  Report Type: Spontaneous
  Country: US (occurrence: US)
  Receive Date: 20240103
  Receipt Date: 20250706
  Transmission Date: 20251021
  Serious: Yes (Other)
  Sender: SANOFI AVENTIS
  Company Number: US-SA-SAC20231228000984

PATIENT
  Age: 87 Year
  Sex: Female

DRUGS (2)
  1. DUPIXENT [Suspect]
     Active Substance: DUPILUMAB
     Indication: Dermatitis atopic
     Route: 058
     Dates: start: 20231224, end: 20231224
  2. DUPIXENT [Suspect]
     Active Substance: DUPILUMAB
     Dosage: 300 MG, QOW
     Route: 058

REACTIONS (22)
  - Neuropathy peripheral [Unknown]
  - Pollakiuria [Unknown]
  - Rhinorrhoea [Unknown]
  - Lacrimation increased [Recovering/Resolving]
  - Sleep disorder due to a general medical condition [Unknown]
  - Dry mouth [Not Recovered/Not Resolved]
  - Dysphagia [Unknown]
  - Productive cough [Unknown]
  - Skin haemorrhage [Unknown]
  - Blister [Recovering/Resolving]
  - Scar [Unknown]
  - Pain [Unknown]
  - Infection [Unknown]
  - Increased viscosity of upper respiratory secretion [Unknown]
  - Chapped lips [Not Recovered/Not Resolved]
  - Nasopharyngitis [Unknown]
  - Dizziness [Unknown]
  - Pruritus [Not Recovered/Not Resolved]
  - Arthralgia [Unknown]
  - Dermatitis atopic [Unknown]
  - Rash [Recovering/Resolving]
  - Drug ineffective [Unknown]

NARRATIVE: CASE EVENT DATE: 20231201
